FAERS Safety Report 9685293 (Version 5)
Quarter: 2014Q2

REPORT INFORMATION
  Report Type: Report from Study
  Country: US (occurrence: US)
  Receive Date: 20131113
  Receipt Date: 20140605
  Transmission Date: 20141212
  Serious: Yes (Hospitalization)
  Sender: FDA-Public Use
  Company Number: US-JNJFOC-20131102143

PATIENT
  Age: 66 Year
  Sex: Female
  Weight: 106.14 kg

DRUGS (23)
  1. TRABECTEDIN [Suspect]
     Indication: MALIGNANT PERITONEAL NEOPLASM
     Dosage: ACTUAL DOSE 1.61 MG
     Route: 042
     Dates: start: 20131023, end: 20131023
  2. DOXORUBICIN HYDROCHLORIDE [Suspect]
     Indication: MALIGNANT PERITONEAL NEOPLASM
     Dosage: ACTUAL DOSE 44 MG
     Route: 042
     Dates: start: 20131023, end: 20131023
  3. DIPHENHYDRAMINE [Concomitant]
  4. HYDROCORTISONE [Concomitant]
  5. METHYLPREDNISOLONE [Concomitant]
  6. LORAZEPAM [Concomitant]
  7. CALCIUM W/MAGNESIUM [Concomitant]
  8. HYDROXYZINE [Concomitant]
  9. LYRICA [Concomitant]
  10. COLACE [Concomitant]
  11. VITAMIN B COMPLEX [Concomitant]
  12. DIFLUCAN [Concomitant]
  13. LIDOCAINE [Concomitant]
  14. NORCO [Concomitant]
  15. ONDANSETRON [Concomitant]
  16. VALIUM [Concomitant]
  17. VICODIN [Concomitant]
  18. RANITIDINE [Concomitant]
  19. PROMETHAZINE [Concomitant]
  20. PEPCID AC [Concomitant]
  21. MIRALAX [Concomitant]
  22. MILK OF MAGNESIA [Concomitant]
  23. METAMUCIL [Concomitant]

REACTIONS (5)
  - Leukopenia [Unknown]
  - Neutropenia [Unknown]
  - Thrombocytopenia [Unknown]
  - Upper gastrointestinal haemorrhage [Recovered/Resolved]
  - Ascites [Not Recovered/Not Resolved]
